FAERS Safety Report 18429770 (Version 1)
Quarter: 2020Q4

REPORT INFORMATION
  Report Type: Spontaneous
  Country: US (occurrence: US)
  Receive Date: 20201026
  Receipt Date: 20201026
  Transmission Date: 20210114
  Serious: Yes (Death, Other)
  Sender: FDA-Public Use
  Company Number: US-PURDUE-USA-2020-0171963

PATIENT
  Sex: Male

DRUGS (1)
  1. OXYCONTIN [Suspect]
     Active Substance: OXYCODONE HYDROCHLORIDE
     Indication: ANALGESIC THERAPY
     Dosage: UNK
     Route: 048
     Dates: start: 2010

REACTIONS (8)
  - Depression [None]
  - Suicide threat [Unknown]
  - Pain [Unknown]
  - Completed suicide [Fatal]
  - Emotional distress [None]
  - Gun shot wound [Fatal]
  - Overdose [Unknown]
  - Drug dependence [Fatal]
